FAERS Safety Report 9688599 (Version 1)
Quarter: 2013Q4

REPORT INFORMATION
  Report Type: Spontaneous
  Country: US (occurrence: US)
  Receive Date: 20131114
  Receipt Date: 20131114
  Transmission Date: 20140711
  Serious: No
  Sender: FDA-Public Use
  Company Number: US-009507513-1310USA011091

PATIENT
  Age: 81 Year
  Sex: Female

DRUGS (2)
  1. AZASITE [Suspect]
     Indication: CONJUNCTIVITIS BACTERIAL
     Dosage: TAKEN ONCE DAILY AT BEDTIME
     Route: 047
     Dates: start: 20131002
  2. LATANOPROST [Concomitant]

REACTIONS (2)
  - Fatigue [Not Recovered/Not Resolved]
  - Expired drug administered [Unknown]
